FAERS Safety Report 9121050 (Version 1)
Quarter: 2013Q1

REPORT INFORMATION
  Report Type: Spontaneous
  Country: AR (occurrence: AR)
  Receive Date: 20130226
  Receipt Date: 20130226
  Transmission Date: 20140127
  Serious: Yes (Hospitalization, Other)
  Sender: FDA-Public Use
  Company Number: AR-ELI_LILLY_AND_COMPANY-AR201302008145

PATIENT
  Age: 75 Year
  Sex: Female

DRUGS (2)
  1. BYETTA [Suspect]
     Dosage: 10 UG, UNK
     Dates: start: 2007
  2. BYETTA [Suspect]
     Dosage: 10 UG, UNK

REACTIONS (1)
  - Subdural haematoma [Unknown]
